FAERS Safety Report 5221712-6 (Version None)
Quarter: 2007Q1

REPORT INFORMATION
  Report Type: 
  Country: None (occurrence: None)
  Receive Date: 20070129
  Receipt Date: 20070123
  Transmission Date: 20070707
  Serious: Yes (Hospitalization, Other)
  Sender: FDA-Public Use
  Company Number: JP-SHR-JP-2007-002046

PATIENT
  Age: 56 Year
  Sex: Female
  Weight: 45 kg

DRUGS (2)
  1. FLUDARA [Suspect]
     Indication: CHRONIC LYMPHOCYTIC LEUKAEMIA
     Dosage: 6 COURSES
     Route: 042
     Dates: start: 20051201, end: 20060601
  2. RITUXAN [Concomitant]
     Dosage: 6 COURSES
     Route: 041
     Dates: start: 20051201, end: 20060601

REACTIONS (3)
  - DYSPNOEA [None]
  - OBLITERATIVE BRONCHIOLITIS [None]
  - RESPIRATORY FAILURE [None]
